FAERS Safety Report 8341858-3 (Version None)
Quarter: 2012Q2

REPORT INFORMATION
  Report Type: 
  Country: None (occurrence: None)
  Receive Date: 20120507
  Receipt Date: 20120425
  Transmission Date: 20120825
  Serious: Yes (Hospitalization)
  Sender: FDA-Public Use
  Company Number: US-ASTRAZENECA-2012SE27206

PATIENT
  Age: 41 Year
  Sex: Male
  Weight: 129.3 kg

DRUGS (12)
  1. NEXIUM [Suspect]
     Route: 048
  2. MEDROL [Concomitant]
     Dosage: AS DIRECTED
     Route: 048
     Dates: start: 20120308
  3. PROMETHAZINE W/ CODEINE [Concomitant]
     Dosage: 6.25-10 MG/5 ML, EVERY 6 HOURS AS NEEDED
     Route: 048
     Dates: start: 20110929
  4. DILTIAZEM HCL [Concomitant]
     Route: 048
  5. INDOMETHACIN [Concomitant]
     Route: 048
     Dates: start: 20120308
  6. OMEPRAZOLE [Suspect]
     Route: 048
     Dates: start: 20111018
  7. FLAGYL [Concomitant]
     Route: 048
     Dates: start: 20111018
  8. TETRACYCLINE [Concomitant]
     Route: 048
     Dates: start: 20111018
  9. ALLOPURINOL [Concomitant]
     Route: 048
     Dates: start: 20111129
  10. NEXIUM [Suspect]
     Dosage: TWICE DAILY
     Route: 048
  11. BISMUTH SUBSALICYLATE [Concomitant]
     Route: 048
     Dates: start: 20111018
  12. COLCHICINE MISCELLANEOUS [Concomitant]
     Route: 048
     Dates: start: 20120402

REACTIONS (9)
  - HYPERLIPIDAEMIA [None]
  - NAUSEA [None]
  - ARTHRALGIA [None]
  - OFF LABEL USE [None]
  - VOMITING [None]
  - ATRIAL FIBRILLATION [None]
  - JOINT SWELLING [None]
  - GOUT [None]
  - CONSTIPATION [None]
